FAERS Safety Report 7480766-7 (Version None)
Quarter: 2011Q2

REPORT INFORMATION
  Report Type: 
  Country: None (occurrence: None)
  Receive Date: 20110512
  Receipt Date: 20110512
  Transmission Date: 20111010
  Serious: Yes (Hospitalization)
  Sender: FDA-Public Use
  Company Number: None

PATIENT
  Age: 16 Year
  Sex: Male
  Weight: 76.6 kg

DRUGS (17)
  1. NACL WITH SODIUM BICARBONATE [Concomitant]
  2. CHLORHEXIDINE GLUCONATE [Concomitant]
  3. APREPITANT [Concomitant]
  4. LEUCOVORIN CALCIUM [Concomitant]
  5. POTASSIUM CHLORIDE [Concomitant]
  6. POTASSIUM CHLORIDE 20MEQ [Concomitant]
  7. CLOTRIMAZOLE [Concomitant]
  8. SODIUM BICARBONATE [Concomitant]
  9. METHOTREXATE [Suspect]
     Indication: BONE SARCOMA
     Dosage: 12G/M2 DAYS 1, 8-, 15, 22 IV
     Route: 042
     Dates: start: 20110503, end: 20110503
  10. DEXAMETHASONE [Concomitant]
  11. ACETAMINOPHEN AND HYDROCODONE BITARTRATE [Concomitant]
  12. GABAPENTIN [Concomitant]
  13. MYLANTA [Concomitant]
  14. NACL WITH SODIUM BICARBONATE [Concomitant]
  15. ONDANSETRON [Concomitant]
  16. AMITRIPTYLINE HCL [Concomitant]
  17. NS [Concomitant]

REACTIONS (2)
  - HAEMODIALYSIS [None]
  - RENAL FAILURE ACUTE [None]
